FAERS Safety Report 7770027-0 (Version None)
Quarter: 2011Q3

REPORT INFORMATION
  Report Type: 
  Country: None (occurrence: None)
  Receive Date: 20110922
  Receipt Date: 20100803
  Transmission Date: 20111222
  Serious: No
  Sender: FDA-Public Use
  Company Number: US-ASTRAZENECA-2007UW24316

PATIENT
  Age: 670 Month
  Sex: Female
  Weight: 95.3 kg

DRUGS (19)
  1. SEROQUEL [Suspect]
     Dosage: 25-50MG
     Route: 048
     Dates: start: 20030818
  2. GABAPENTIN [Concomitant]
     Dosage: 300 MG DISPENSED
     Dates: start: 20060515
  3. SEROQUEL [Suspect]
     Indication: DEPRESSION
     Dosage: 25 MG - 50 MG
     Route: 048
     Dates: start: 20030121, end: 20060517
  4. NAPROXEN [Concomitant]
     Dosage: 500 MG, DISPENSED
     Dates: start: 20060614
  5. RISPERDAL [Concomitant]
     Indication: SCHIZOPHRENIA
     Dates: start: 20040623
  6. RISPERDAL [Concomitant]
     Indication: BIPOLAR DISORDER
     Dates: start: 20040623
  7. METFORMIN HCL [Concomitant]
     Dosage: 500 MG DISPENSED
     Dates: start: 20051109
  8. GEODON [Concomitant]
     Dosage: 60 MG,80 MG
     Dates: start: 20040517
  9. SEROQUEL [Suspect]
     Dosage: 25-50MG
     Route: 048
     Dates: start: 20030818
  10. FLUPHENAZINE [Concomitant]
     Dosage: 5-10 MG DISPENSED
     Dates: start: 20060515
  11. SEROQUEL [Suspect]
     Indication: BIPOLAR DISORDER
     Dosage: 25 MG - 50 MG
     Route: 048
     Dates: start: 20030121, end: 20060517
  12. SEROQUEL [Suspect]
     Dosage: 25-100 MG
     Route: 048
     Dates: start: 20030101, end: 20060601
  13. SEROQUEL [Suspect]
     Dosage: 25-100 MG
     Route: 048
     Dates: start: 20030101, end: 20060601
  14. LORAZEPAM [Concomitant]
     Dosage: 2 MG DISPENSED
     Dates: start: 20060615
  15. SEROQUEL [Suspect]
     Indication: SCHIZOPHRENIA
     Dosage: 25 MG - 50 MG
     Route: 048
     Dates: start: 20030121, end: 20060517
  16. SEROQUEL [Suspect]
     Dosage: 25-100 MG
     Route: 048
     Dates: start: 20030101, end: 20060601
  17. SEROQUEL [Suspect]
     Dosage: 25-50MG
     Route: 048
     Dates: start: 20030818
  18. RISPERDAL [Concomitant]
     Indication: DEPRESSION
     Dates: start: 20040623
  19. HALDOL [Concomitant]
     Dates: start: 20100503, end: 20100603

REACTIONS (5)
  - ROAD TRAFFIC ACCIDENT [None]
  - ABDOMINAL DISCOMFORT [None]
  - DIABETIC COMPLICATION [None]
  - TYPE 2 DIABETES MELLITUS [None]
  - OBESITY [None]
